FAERS Safety Report 21307835 (Version 1)
Quarter: 2022Q3

REPORT INFORMATION
  Report Type: Other
  Country: CN (occurrence: CN)
  Receive Date: 20220908
  Receipt Date: 20220908
  Transmission Date: 20221027
  Serious: No
  Sender: FDA-Public Use
  Company Number: CN-CSTONE PHARMACEUTICALS (SUZHOU) CO., LTD.-2022CN01286

PATIENT
  Age: 13 Year
  Sex: Male

DRUGS (1)
  1. AYVAKIT [Suspect]
     Active Substance: AVAPRITINIB
     Indication: Gastrointestinal stromal tumour
     Dosage: 50 MILLIGRAM, UNKNOWN
     Route: 048
     Dates: start: 20220704

REACTIONS (2)
  - Off label use [Unknown]
  - Eyelid oedema [Not Recovered/Not Resolved]

NARRATIVE: CASE EVENT DATE: 20220704
